FAERS Safety Report 8214164-5 (Version None)
Quarter: 2012Q1

REPORT INFORMATION
  Report Type: 
  Country: None (occurrence: None)
  Receive Date: 20120316
  Receipt Date: 20120308
  Transmission Date: 20120608
  Serious: Yes (Hospitalization)
  Sender: FDA-Public Use
  Company Number: US-BAYER-2011-047202

PATIENT
  Age: 18 Year
  Sex: Female
  Weight: 72.562 kg

DRUGS (7)
  1. ANTIBIOTICS [Concomitant]
     Dosage: INTERMITTENTLY WHEN NECESSARY
  2. DROSPIRENONE AND ETHINYL ESTRADIOL [Suspect]
     Indication: CONTRACEPTION
     Dosage: UNK
     Dates: start: 20070101, end: 20090701
  3. DROSPIRENONE AND ETHINYL ESTRADIOL [Suspect]
     Indication: ACNE
  4. IBUPROFEN [Concomitant]
     Dosage: INTERMITTENTLY WHEN NECESSARY
  5. YASMIN [Suspect]
     Dosage: UNK
     Dates: start: 20081101, end: 20090801
  6. DROSPIRENONE AND ETHINYL ESTRADIOL [Suspect]
     Indication: PREMENSTRUAL SYNDROME
  7. ACID REDUCER [Concomitant]
     Indication: UNEVALUABLE EVENT

REACTIONS (9)
  - CHOLELITHIASIS [None]
  - PAIN [None]
  - ANXIETY [None]
  - EMOTIONAL DISTRESS [None]
  - ABDOMINAL PAIN UPPER [None]
  - ANHEDONIA [None]
  - GALLBLADDER DISORDER [None]
  - FEAR [None]
  - PSYCHOLOGICAL TRAUMA [None]
